FAERS Safety Report 12539545 (Version 1)
Quarter: 2016Q3

REPORT INFORMATION
  Report Type: Other
  Country: None (occurrence: US)
  Receive Date: 20160708
  Receipt Date: 20160708
  Transmission Date: 20161109
  Serious: Yes (Hospitalization)
  Sender: FDA-Public Use
  Company Number: US-AKORN-34613

PATIENT

DRUGS (1)
  1. DOCU LIQUID [Suspect]
     Active Substance: DOCUSATE SODIUM

REACTIONS (1)
  - Burkholderia cepacia complex infection [None]
